FAERS Safety Report 18282582 (Version 1)
Quarter: 2020Q3

REPORT INFORMATION
  Report Type: Spontaneous
  Country: US (occurrence: US)
  Receive Date: 20200917
  Receipt Date: 20200917
  Transmission Date: 20201103
  Serious: Yes (Death)
  Sender: FDA-Public Use
  Company Number: None

PATIENT
  Age: 70 Year
  Sex: Male
  Weight: 86.8 kg

DRUGS (4)
  1. DOXORUBICIN [Suspect]
     Active Substance: DOXORUBICIN
     Indication: METASTASES TO LIVER
     Dates: start: 20181210, end: 20181210
  2. ONCOZENE 40 OR 100 MICRON BEADS [DEVICE] [Suspect]
     Active Substance: DEVICE
  3. TRANS?ARTERIAL CHEMOEMBOLIZATION CATHETER [DEVICE] [Suspect]
     Active Substance: DEVICE
  4. DOXORUBICIN [Suspect]
     Active Substance: DOXORUBICIN
     Indication: METASTATIC NEOPLASM
     Dates: start: 20181210, end: 20181210

REACTIONS (4)
  - Oedema peripheral [None]
  - Hepatic function abnormal [None]
  - Varices oesophageal [None]
  - Portal hypertension [None]

NARRATIVE: CASE EVENT DATE: 20181210
